FAERS Safety Report 6330684-2 (Version None)
Quarter: 2009Q3

REPORT INFORMATION
  Report Type: 
  Country: None (occurrence: None)
  Receive Date: 20090827
  Receipt Date: 20090817
  Transmission Date: 20100115
  Serious: Yes (Hospitalization, Other)
  Sender: FDA-Public Use
  Company Number: US-JNJFOC-20090807084

PATIENT
  Age: 69 Year
  Sex: Male

DRUGS (30)
  1. LEVAQUIN [Suspect]
     Indication: INFECTION PROPHYLAXIS
     Route: 048
  2. DECITABINE [Suspect]
     Route: 042
  3. DECITABINE [Suspect]
     Route: 042
  4. DECITABINE [Suspect]
     Route: 042
  5. DECITABINE [Suspect]
     Indication: ACUTE MYELOID LEUKAEMIA
     Route: 042
  6. VORINOSTAT [Suspect]
     Route: 048
  7. VORINOSTAT [Suspect]
     Route: 048
  8. VORINOSTAT [Suspect]
     Route: 048
  9. VORINOSTAT [Suspect]
     Indication: ACUTE MYELOID LEUKAEMIA
     Route: 048
  10. ACYCLOVIR [Suspect]
     Indication: DRUG USE FOR UNKNOWN INDICATION
     Route: 065
  11. FLUCONAZOLE [Suspect]
     Indication: DRUG USE FOR UNKNOWN INDICATION
     Route: 065
  12. ACETAMINOPHEN [Concomitant]
     Route: 065
  13. ACETAMINOPHEN AND OXYCODONE HCL [Concomitant]
     Route: 065
  14. ALLOPURINOL [Concomitant]
     Route: 065
  15. AMLODIPINE BESYLATE [Concomitant]
     Route: 065
  16. BUMETANIDE [Concomitant]
     Route: 065
  17. CALCIUM [Concomitant]
     Route: 065
  18. DOCUSATE SODIUM [Concomitant]
     Route: 065
  19. FAMOTIDINE [Concomitant]
     Route: 065
  20. FUROSEMIDE [Concomitant]
     Route: 065
  21. HYDRALAZINE HCL [Concomitant]
     Route: 065
  22. LORAZEPAM [Concomitant]
     Route: 065
  23. MEPERIDINE HYDROCHLORIDE [Concomitant]
     Route: 065
  24. METOLAZONE [Concomitant]
     Route: 065
  25. ONDANSETRON HYDROCHLORIDE [Concomitant]
     Route: 065
  26. POTASSIUM CHLORIDE [Concomitant]
     Route: 065
  27. SENNA [Concomitant]
     Route: 065
  28. SODIUM ACETATE [Concomitant]
     Route: 065
  29. SPIRONOLACTONE [Concomitant]
     Route: 065
  30. ACETAMINOPHEN/HYDROCODONE BITARTRATE [Concomitant]
     Route: 065

REACTIONS (40)
  - BLOOD ALBUMIN DECREASED [None]
  - BLOOD CULTURE POSITIVE [None]
  - BLOOD GLUCOSE INCREASED [None]
  - BLOOD LACTATE DEHYDROGENASE INCREASED [None]
  - BONE PAIN [None]
  - CHILLS [None]
  - CLOSTRIDIAL INFECTION [None]
  - CONFUSIONAL STATE [None]
  - COUGH [None]
  - DEHYDRATION [None]
  - DIARRHOEA [None]
  - DISORIENTATION [None]
  - DIZZINESS [None]
  - DRUG INTOLERANCE [None]
  - DRUG TOXICITY [None]
  - ELECTROCARDIOGRAM QT PROLONGED [None]
  - FEBRILE NEUTROPENIA [None]
  - FLUID OVERLOAD [None]
  - FUNGAL INFECTION [None]
  - HAEMATOCRIT DECREASED [None]
  - HAEMOGLOBIN DECREASED [None]
  - HYPOMAGNESAEMIA [None]
  - HYPONATRAEMIA [None]
  - HYPOTENSION [None]
  - LUNG INFILTRATION [None]
  - MALNUTRITION [None]
  - MENTAL STATUS CHANGES [None]
  - MUSCLE SPASMS [None]
  - NAUSEA [None]
  - NERVOUS SYSTEM DISORDER [None]
  - OPPORTUNISTIC INFECTION [None]
  - OSTEOSCLEROSIS [None]
  - PLATELET COUNT DECREASED [None]
  - SEPSIS [None]
  - STAPHYLOCOCCAL BACTERAEMIA [None]
  - SUPRAVENTRICULAR EXTRASYSTOLES [None]
  - THIRST [None]
  - VISION BLURRED [None]
  - VOMITING [None]
  - WEIGHT INCREASED [None]
